FAERS Safety Report 25582819 (Version 1)
Quarter: 2025Q3

REPORT INFORMATION
  Report Type: Spontaneous
  Country: CN (occurrence: CN)
  Receive Date: 20250720
  Receipt Date: 20250720
  Transmission Date: 20251020
  Serious: Yes (Other)
  Sender: BEIGENE
  Company Number: CN-BEIGENE-BGN-2025-011441

PATIENT
  Age: 74 Year
  Weight: 57.5 kg

DRUGS (3)
  1. TISLELIZUMAB [Suspect]
     Active Substance: TISLELIZUMAB
     Indication: Oesophageal carcinoma
     Dosage: 200 MILLIGRAM, D0, Q3WK
  2. CARBOPLATIN [Suspect]
     Active Substance: CARBOPLATIN
     Indication: Oesophageal carcinoma
     Dosage: 0.4 GRAM, D1, Q3WK
  3. PACLITAXEL [Suspect]
     Active Substance: PACLITAXEL
     Indication: Oesophageal carcinoma
     Dosage: 400 MILLIGRAM,D1, Q3WK

REACTIONS (1)
  - Hepatic enzyme increased [Recovering/Resolving]
